FAERS Safety Report 18393808 (Version 2)
Quarter: 2020Q4

REPORT INFORMATION
  Report Type: Spontaneous
  Country: US (occurrence: US)
  Receive Date: 20201016
  Receipt Date: 20201023
  Transmission Date: 20210114
  Serious: Yes (Death, Other)
  Sender: FDA-Public Use
  Company Number: US-PFIZER INC-2020399670

PATIENT
  Age: 57 Year
  Sex: Male
  Weight: 112 kg

DRUGS (5)
  1. HEPARIN [Suspect]
     Active Substance: HEPARIN SODIUM
     Dosage: UNK
     Dates: start: 202009, end: 202009
  2. HEPARIN SODIUM. [Suspect]
     Active Substance: HEPARIN SODIUM
     Dosage: 25000 IU(UNITS PER 250ML)
     Route: 042
     Dates: start: 20200921, end: 20200923
  3. HEPARIN [Suspect]
     Active Substance: HEPARIN SODIUM
     Dosage: 37000 IU
     Dates: start: 20200921, end: 20200921
  4. HEPARIN [Suspect]
     Active Substance: HEPARIN SODIUM
     Dosage: 37000 IU
     Dates: start: 20200923, end: 20200923
  5. HEPARIN [Suspect]
     Active Substance: HEPARIN SODIUM
     Dosage: UNK
     Dates: start: 202009, end: 202009

REACTIONS (1)
  - Pulmonary embolism [Fatal]

NARRATIVE: CASE EVENT DATE: 20200923
